FAERS Safety Report 9991609 (Version 1)
Quarter: 2014Q1

REPORT INFORMATION
  Report Type: Spontaneous
  Country: JP (occurrence: JP)
  Receive Date: 20140310
  Receipt Date: 20140310
  Transmission Date: 20141002
  Serious: Yes (Other)
  Sender: FDA-Public Use
  Company Number: JP-SA-2014SA028783

PATIENT
  Age: 89 Year
  Sex: Male

DRUGS (1)
  1. BCG FOR IMMUNOTHERAPY [Suspect]
     Indication: BLADDER CANCER
     Route: 043

REACTIONS (6)
  - Epididymitis tuberculous [Unknown]
  - Abscess [Unknown]
  - Scrotal disorder [Unknown]
  - Infected fistula [Unknown]
  - Fistula discharge [Unknown]
  - Skin lesion [Unknown]
